FAERS Safety Report 6241800-5 (Version None)
Quarter: 2009Q2

REPORT INFORMATION
  Report Type: 
  Country: None (occurrence: None)
  Receive Date: 20090623
  Receipt Date: 20090610
  Transmission Date: 20091009
  Serious: Yes (Other)
  Sender: FDA-Public Use
  Company Number: AU-AMGEN-US348301

PATIENT
  Sex: Male

DRUGS (2)
  1. ENBREL [Suspect]
     Indication: PSORIASIS
     Dosage: 50MG
     Route: 058
     Dates: start: 20090301, end: 20090519
  2. CYCLOSPORINE [Concomitant]
     Indication: PSORIASIS
     Dosage: 300MG
     Route: 048

REACTIONS (7)
  - DIZZINESS POSTURAL [None]
  - HYPOAESTHESIA [None]
  - LYMPH NODE PAIN [None]
  - OROPHARYNGEAL PAIN [None]
  - PAIN [None]
  - PARAESTHESIA [None]
  - SYNCOPE [None]
